FAERS Safety Report 4629896-5 (Version None)
Quarter: 2005Q2

REPORT INFORMATION
  Report Type: 
  Country: None (occurrence: None)
  Receive Date: 20050406
  Receipt Date: 20050316
  Transmission Date: 20051028
  Serious: Yes (Hospitalization)
  Sender: FDA-Public Use
  Company Number: EWC050343266

PATIENT
  Age: 74 Year
  Sex: Male
  Weight: 58 kg

DRUGS (15)
  1. ALIMTA [Suspect]
     Indication: MESOTHELIOMA
     Dosage: 800 MG/1 OTHER
     Dates: start: 20050218
  2. CARBOPLATIN [Suspect]
     Indication: MESOTHELIOMA
     Dosage: 300 MG/1 OTHER
     Dates: start: 20050218
  3. VITAMIN B-12 [Concomitant]
  4. FOLIC ACID [Concomitant]
  5. DEXAMETHASONE [Concomitant]
  6. FUROSEMIDE [Concomitant]
  7. AMLODIPINE [Concomitant]
  8. LANSOPRAZOLE [Concomitant]
  9. VASTAREL (TRIMETAZIDINE HYDROCHLORIDE) [Concomitant]
  10. ENALAPRIL [Concomitant]
  11. ALLOPURINOL [Concomitant]
  12. CARDOASPIRINE (ACETYLSALICYLIC ACID) [Concomitant]
  13. ACTRAPID (INSULIN) [Concomitant]
  14. ACTRAPHANE [Concomitant]
  15. SINVACOR (SIMVASTATIN RATIOPHARM) [Concomitant]

REACTIONS (9)
  - ANAEMIA [None]
  - ASTHENIA [None]
  - BRONCHITIS CHRONIC [None]
  - DRUG TOXICITY [None]
  - FEBRILE NEUTROPENIA [None]
  - LEUKOPENIA [None]
  - MUCOSAL INFLAMMATION [None]
  - SUPERINFECTION [None]
  - THROMBOCYTOPENIA [None]
